FAERS Safety Report 8472872-5 (Version None)
Quarter: 2012Q2

REPORT INFORMATION
  Report Type: 
  Country: None (occurrence: None)
  Receive Date: 20120627
  Receipt Date: 20120313
  Transmission Date: 20120825
  Serious: No
  Sender: FDA-Public Use
  Company Number: US-MYLANLABS-2012S1000358

PATIENT
  Age: 82 Year
  Sex: Female

DRUGS (8)
  1. D3 [Concomitant]
  2. FISH OIL [Concomitant]
  3. CALCIUM [Concomitant]
  4. VITAMIN [Concomitant]
  5. MAGNESIUM SULFATE [Concomitant]
  6. PRESERVISION LUTEIN [Concomitant]
  7. OMEPRAZOLE [Suspect]
     Indication: GASTROOESOPHAGEAL REFLUX DISEASE
     Route: 048
     Dates: start: 20090101, end: 20120101
  8. LIPITOR [Concomitant]
     Indication: BLOOD CHOLESTEROL INCREASED
     Route: 048

REACTIONS (3)
  - SKIN REACTION [None]
  - DYSPHAGIA [None]
  - DRY SKIN [None]
